FAERS Safety Report 9015857 (Version 1)
Quarter: 2013Q1

REPORT INFORMATION
  Report Type: Spontaneous
  Country: GB (occurrence: None)
  Receive Date: 20130103
  Receipt Date: 20130103
  Transmission Date: 20140127
  Serious: Yes (Hospitalization, Other)
  Sender: FDA-Public Use
  Company Number: AUR-APL-2012-05627

PATIENT
  Age: 82 Year
  Sex: Female
  Weight: 41.5 kg

DRUGS (8)
  1. QUETIAPINE (QUETIAPINE) (QUETIAPINE) [Suspect]
     Indication: PRODUCT USED FOR UNKNOWN INDICATION
     Dosage: (25 MG, 1 IN 1 D)
     Route: 048
     Dates: start: 20110613, end: 20121217
  2. CALCICHEW-D3 (LEKOVIT CA) [Concomitant]
  3. FOLIC ACID (FOLIC ACID) [Concomitant]
  4. LACTULOSE (LACTULOSE) [Concomitant]
  5. SENNA (SENNA ALEXANDRINA) [Concomitant]
  6. CO-CODAMOL (PANADEINE CO) [Concomitant]
  7. ENOXAPARIN SODIUM (ENOXAPARIN SODIUM) [Concomitant]
  8. MICONAZOLE (MICONAZOLE) [Concomitant]

REACTIONS (3)
  - Hypernatraemia [None]
  - Dehydration [None]
  - Diabetes insipidus [None]
